FAERS Safety Report 4837517-1 (Version None)
Quarter: 2005Q4

REPORT INFORMATION
  Report Type: 
  Country: None (occurrence: None)
  Receive Date: 20051128
  Receipt Date: 20051117
  Transmission Date: 20060501
  Serious: Yes (Hospitalization)
  Sender: FDA-Public Use
  Company Number: FR-GLAXOSMITHKLINE-B0401659A

PATIENT
  Sex: Male

DRUGS (1)
  1. ZYBAN [Suspect]
     Dosage: 150MG SINGLE DOSE
     Route: 048

REACTIONS (2)
  - CLAVICLE FRACTURE [None]
  - EPILEPSY [None]
